FAERS Safety Report 6678948-7 (Version None)
Quarter: 2010Q2

REPORT INFORMATION
  Report Type: 
  Country: None (occurrence: None)
  Receive Date: 20100413
  Receipt Date: 20100407
  Transmission Date: 20101027
  Serious: Yes (Hospitalization)
  Sender: FDA-Public Use
  Company Number: US-SANOFI-AVENTIS-2010SA020469

PATIENT
  Age: 67 Year
  Sex: Male

DRUGS (10)
  1. PLAVIX [Suspect]
     Indication: CORONARY ARTERY DISEASE
     Route: 048
  2. ANTI-SMOKING AGENTS [Suspect]
     Indication: SMOKING CESSATION THERAPY
     Route: 048
     Dates: start: 20090104, end: 20090108
  3. CARDIZEM [Suspect]
     Indication: HEART RATE INCREASED
     Route: 065
  4. BUPROPION [Suspect]
     Route: 048
  5. WARFARIN [Suspect]
     Indication: ATRIAL FIBRILLATION
     Route: 048
  6. LIPITOR [Concomitant]
     Dates: start: 20090201
  7. ACETYLSALICYLIC ACID [Concomitant]
  8. SIMVASTATIN [Concomitant]
  9. METOPROLOL TARTRATE [Concomitant]
  10. DIGOXIN [Concomitant]

REACTIONS (12)
  - AGITATION [None]
  - ATRIAL FIBRILLATION [None]
  - CEREBRAL HAEMATOMA [None]
  - CORONARY ARTERY OCCLUSION [None]
  - GAIT DISTURBANCE [None]
  - HALLUCINATION [None]
  - HEART RATE INCREASED [None]
  - HYPERTENSION [None]
  - HYPOTENSION [None]
  - INTRACRANIAL ANEURYSM [None]
  - MYOCARDIAL INFARCTION [None]
  - PNEUMONIA [None]
